FAERS Safety Report 5271049-4 (Version None)
Quarter: 2007Q1

REPORT INFORMATION
  Report Type: 
  Country: None (occurrence: None)
  Receive Date: 20070315
  Receipt Date: 20070301
  Transmission Date: 20070707
  Serious: Yes (Other)
  Sender: FDA-Public Use
  Company Number: 2007RR-06138

PATIENT
  Age: 7 Day
  Sex: Female

DRUGS (1)
  1. IBUPROFEN [Suspect]
     Indication: PATENT DUCTUS ARTERIOSUS
     Dosage: 10 MG/KG, 5 MG/KG

REACTIONS (4)
  - FLUID RETENTION [None]
  - HYPONATRAEMIA [None]
  - OLIGURIA [None]
  - RENAL IMPAIRMENT [None]
